FAERS Safety Report 7092319-3 (Version None)
Quarter: 2010Q4

REPORT INFORMATION
  Report Type: 
  Country: None (occurrence: None)
  Receive Date: 20101109
  Receipt Date: 20101104
  Transmission Date: 20110411
  Serious: Yes (Other)
  Sender: FDA-Public Use
  Company Number: CA-BRISTOL-MYERS SQUIBB COMPANY-15370216

PATIENT
  Age: 52 Year
  Sex: Female

DRUGS (6)
  1. ORENCIA [Suspect]
     Indication: RHEUMATOID ARTHRITIS
     Dosage: LAST INFUSION ON 06AUG2010 NO OF INF:12
     Route: 042
     Dates: start: 20081216
  2. SULFASALAZINE [Concomitant]
  3. CELEBREX [Concomitant]
  4. PAXIL [Concomitant]
  5. OMEPRAZOLE [Concomitant]
  6. PREDNISONE [Concomitant]

REACTIONS (5)
  - ASTHMA [None]
  - COUGH [None]
  - FATIGUE [None]
  - PYREXIA [None]
  - SNEEZING [None]
